FAERS Safety Report 10168715 (Version 1)
Quarter: 2014Q2

REPORT INFORMATION
  Report Type: Spontaneous
  Country: None (occurrence: None)
  Receive Date: 20140509
  Receipt Date: 20140509
  Transmission Date: 20141212
  Serious: Yes (Hospitalization, Other)
  Sender: FDA-Public Use
  Company Number: 7289075

PATIENT
  Age: 23 Year
  Sex: Male

DRUGS (1)
  1. EUTHYROX [Suspect]
     Indication: THERAPY CHANGE
     Dosage: 1 DF
     Route: 048
     Dates: start: 20131018

REACTIONS (13)
  - Mental disorder [None]
  - Anxiety [None]
  - Agitated depression [None]
  - Alcohol abuse [None]
  - Temperature intolerance [None]
  - Increased appetite [None]
  - Tobacco user [None]
  - Insomnia [None]
  - Restlessness [None]
  - Nervousness [None]
  - Psychiatric symptom [None]
  - Depressed mood [None]
  - Temperature intolerance [None]
